FAERS Safety Report 8109011-6 (Version None)
Quarter: 2012Q1

REPORT INFORMATION
  Report Type: 
  Country: None (occurrence: None)
  Receive Date: 20120202
  Receipt Date: 20120126
  Transmission Date: 20120608
  Serious: Yes (Other)
  Sender: FDA-Public Use
  Company Number: CA-US-EMD SERONO, INC.-230078J08CAN

PATIENT
  Sex: Female

DRUGS (10)
  1. REBIF [Suspect]
     Indication: RELAPSING-REMITTING MULTIPLE SCLEROSIS
     Dates: start: 20040730, end: 20090701
  2. AMITRIPTYLINE HCL [Concomitant]
  3. ACETAMINOPHEN [Concomitant]
  4. CLONAZEPAM [Concomitant]
  5. IBUPROFEN (ADVIL) [Concomitant]
  6. NAPROXEN [Concomitant]
  7. BACLOFEN [Concomitant]
  8. CITALOPRAM HYDROBROMIDE [Concomitant]
  9. ARTHROTEC [Concomitant]
  10. RISPERIDONE [Concomitant]

REACTIONS (10)
  - MIGRAINE [None]
  - INJECTION SITE ERYTHEMA [None]
  - DYSARTHRIA [None]
  - URINARY TRACT INFECTION [None]
  - PANIC ATTACK [None]
  - HYPOAESTHESIA [None]
  - HEADACHE [None]
  - INJECTION SITE REACTION [None]
  - AMNESIA [None]
  - INJECTION SITE URTICARIA [None]
